FAERS Safety Report 18732497 (Version 2)
Quarter: 2022Q1

REPORT INFORMATION
  Report Type: Spontaneous
  Country: ES (occurrence: ES)
  Receive Date: 20210113
  Receipt Date: 20220201
  Transmission Date: 20220423
  Serious: Yes (Hospitalization)
  Sender: FDA-Public Use
  Company Number: ES-AEMPS-708107

PATIENT
  Age: 16 Year
  Sex: Male
  Weight: 58.5 kg

DRUGS (6)
  1. IMATINIB [Suspect]
     Active Substance: IMATINIB
     Indication: Acute leukaemia
     Dosage: 400 MILLIGRAM, DAILY
     Route: 048
     Dates: start: 20200608, end: 20200622
  2. DAUNORUBICIN HYDROCHLORIDE [Concomitant]
     Active Substance: DAUNORUBICIN HYDROCHLORIDE
     Indication: Acute leukaemia
     Dosage: 44 MILLIGRAM/SQ. METER, DAILY
     Route: 065
     Dates: start: 20200608, end: 20200608
  3. ONCASPAR 750 U/ML POLVO PARA SOLUCION INYECTABLE Y PARA PERFUSION, ... [Concomitant]
     Indication: Acute leukaemia
     Dosage: 1000 INTERNATIONAL UNIT, DAILY
     Route: 042
     Dates: start: 20200605, end: 20200605
  4. VINCRISTINE SULFATE [Concomitant]
     Active Substance: VINCRISTINE SULFATE
     Indication: Acute leukaemia
     Dosage: 2 MILLIGRAM, DAILY
     Route: 042
     Dates: start: 20200608, end: 20200608
  5. METHYLPREDNISOLONE [Concomitant]
     Active Substance: METHYLPREDNISOLONE
     Indication: Acute leukaemia
     Dosage: 44 MILLIGRAM, 1DOSE/12HOUR
     Route: 048
     Dates: start: 20200525, end: 20200630
  6. ENOXAPARIN SODIUM [Concomitant]
     Active Substance: ENOXAPARIN SODIUM
     Indication: Acute leukaemia
     Dosage: 20 MILLIGRAM/SQ. METER, QD
     Route: 058
     Dates: start: 20200605, end: 20200702

REACTIONS (2)
  - Generalised oedema [Recovered/Resolved]
  - Ascites [Recovered/Resolved]

NARRATIVE: CASE EVENT DATE: 20200615
